FAERS Safety Report 8876474 (Version 2)
Quarter: 2013Q2

REPORT INFORMATION
  Report Type: Spontaneous
  Country: US (occurrence: None)
  Receive Date: 20120426
  Receipt Date: 20120703
  Transmission Date: 20140414
  Serious: Yes (Other)
  Sender: FDA-Public Use
  Company Number: PHEH2012US004649

PATIENT
  Age: 44 Year
  Sex: Female

DRUGS (4)
  1. GILENYA [Suspect]
     Indication: MULTIPLE SCLEROSIS
     Dates: start: 201109, end: 20120217
  2. ZOLPIDEM (ZOLPIDEM) [Concomitant]
  3. ENABLEX (DARIFENACIN HYDROBROMIDE) [Concomitant]
  4. CRESTOR (ROSUVASTATIN CALCIUM) [Concomitant]

REACTIONS (4)
  - Genital discharge [None]
  - Pyrexia [None]
  - Constipation [None]
  - Drug intolerance [None]
